FAERS Safety Report 17551298 (Version 1)
Quarter: 2020Q1

REPORT INFORMATION
  Report Type: Spontaneous
  Country: US (occurrence: US)
  Receive Date: 20200317
  Receipt Date: 20200317
  Transmission Date: 20200409
  Serious: No
  Sender: FDA-Public Use
  Company Number: US-ASTELLAS-2019US043562

PATIENT
  Sex: Female

DRUGS (1)
  1. CRESEMBA [Suspect]
     Active Substance: ISAVUCONAZONIUM SULFATE
     Indication: PNEUMONIA FUNGAL
     Dosage: UNK, UNKNOWN FREQ.
     Route: 042

REACTIONS (4)
  - Feeling hot [Unknown]
  - Hyperhidrosis [Unknown]
  - Product use in unapproved indication [Unknown]
  - Dyspnoea [Unknown]
